FAERS Safety Report 7445827-7 (Version None)
Quarter: 2011Q2

REPORT INFORMATION
  Report Type: 
  Country: None (occurrence: None)
  Receive Date: 20110429
  Receipt Date: 20110418
  Transmission Date: 20111010
  Serious: Yes (Disabling, Other)
  Sender: FDA-Public Use
  Company Number: PHHY2011US15068

PATIENT
  Sex: Female

DRUGS (8)
  1. ACETAMINOPHEN AND HYDROCODONE BITARTRATE [Concomitant]
     Route: 048
  2. ZOMETA [Suspect]
     Dosage: UNK
  3. VICODIN [Concomitant]
  4. VITAMIN D [Concomitant]
     Dosage: 1000 UNIT TABLETS. 1 PO DAILY
  5. AREDIA [Suspect]
     Indication: METASTASES TO BONE
     Dosage: 90 MG MONTHLY
     Route: 042
     Dates: start: 20090619, end: 20101201
  6. AMOXICILLIN TRIHYDRATE [Concomitant]
     Dosage: 500 MG, Q8H
     Route: 048
  7. TORADOL [Concomitant]
  8. XELODA [Concomitant]
     Dosage: 500 MG, UNK
     Route: 048
     Dates: start: 20090504

REACTIONS (14)
  - OSTEOMYELITIS [None]
  - CONSTIPATION [None]
  - ASPARTATE AMINOTRANSFERASE INCREASED [None]
  - PERIODONTITIS [None]
  - TOOTHACHE [None]
  - GINGIVAL SWELLING [None]
  - OSTEONECROSIS OF JAW [None]
  - EYE IRRITATION [None]
  - BLOOD ALKALINE PHOSPHATASE INCREASED [None]
  - GINGIVAL ERYTHEMA [None]
  - DISCOMFORT [None]
  - ALANINE AMINOTRANSFERASE INCREASED [None]
  - HAEMOGLOBIN DECREASED [None]
  - PAIN IN JAW [None]
